FAERS Safety Report 10706669 (Version 5)
Quarter: 2015Q1

REPORT INFORMATION
  Report Type: Report from Study
  Country: FI (occurrence: FI)
  Receive Date: 20150113
  Receipt Date: 20150316
  Transmission Date: 20150721
  Serious: Yes (Life-Threatening, Hospitalization)
  Sender: FDA-Public Use
  Company Number: FI-NOVOPROD-434915

PATIENT
  Age: 69 Year
  Sex: Male
  Weight: 110.7 kg

DRUGS (1)
  1. LIRAGLUTIDE FLEXPEN [Suspect]
     Active Substance: LIRAGLUTIDE
     Indication: TYPE 2 DIABETES MELLITUS
     Dosage: 1.8,MG,QD
     Route: 058
     Dates: start: 20110201

REACTIONS (2)
  - Aortic stenosis [Recovered/Resolved]
  - Cardiac failure [Recovered/Resolved]

NARRATIVE: CASE EVENT DATE: 20141113
